FAERS Safety Report 6646248-7 (Version None)
Quarter: 2010Q1

REPORT INFORMATION
  Report Type: 
  Country: None (occurrence: None)
  Receive Date: 20100323
  Receipt Date: 20100308
  Transmission Date: 20100710
  Serious: Yes (Hospitalization, Other)
  Sender: FDA-Public Use
  Company Number: FR-PFIZER INC-2010036182

PATIENT
  Age: 64 Year
  Sex: Male

DRUGS (14)
  1. ATARAX [Suspect]
     Dosage: 50 MG, DAILY
     Route: 048
     Dates: start: 20100116
  2. AUGMENTIN [Suspect]
     Indication: BRONCHOPNEUMONIA
     Dosage: 3 G, DAILY
     Route: 048
     Dates: start: 20100112, end: 20100113
  3. OFLOXACIN [Suspect]
     Indication: BRONCHOPNEUMONIA
     Dosage: 200 MG, 2X/DAY
     Route: 048
     Dates: start: 20100112, end: 20100113
  4. LOVENOX [Suspect]
     Indication: BRONCHOPNEUMONIA
     Dosage: 0.4 ML, DAILY
     Route: 042
     Dates: start: 20100112, end: 20100113
  5. TIENAM [Suspect]
     Indication: BRONCHOPNEUMONIA
     Dosage: 500 MG, 3X/DAY
     Route: 042
     Dates: start: 20100113, end: 20100121
  6. AMIKACIN [Suspect]
     Indication: BRONCHOPNEUMONIA
     Dosage: 500 MG, 2X/DAY
     Route: 048
     Dates: start: 20100113, end: 20100121
  7. ARIXTRA [Suspect]
     Dosage: 7.5 MG, DAILY
     Route: 058
     Dates: start: 20100113, end: 20100127
  8. NEXIUM [Suspect]
     Dosage: 40 MG, DAILY
     Route: 048
     Dates: start: 20091201
  9. NORSET [Suspect]
     Dosage: 15 MG, DAILY
     Route: 048
     Dates: start: 20091201
  10. SOLUPRED [Suspect]
     Dosage: 60 MG, DAILY
     Route: 048
     Dates: start: 20100116
  11. GYNO-TARDYFERON [Suspect]
     Dosage: 80 MG, 2X/DAY
     Route: 048
     Dates: start: 20091201
  12. PEMETREXED [Concomitant]
  13. SKENAN [Concomitant]
     Dosage: 10 MG, UNK
  14. ACTISKENAN [Concomitant]
     Dosage: 10 MG, UNK

REACTIONS (2)
  - NEUTROPENIA [None]
  - PLATELET COUNT DECREASED [None]
